FAERS Safety Report 13642815 (Version 1)
Quarter: 2017Q2

REPORT INFORMATION
  Report Type: Spontaneous
  Country: US (occurrence: US)
  Receive Date: 20170612
  Receipt Date: 20170612
  Transmission Date: 20170830
  Serious: No
  Sender: FDA-Public Use
  Company Number: US-SEPTODONT-201703835

PATIENT
  Age: 78 Year
  Sex: Female

DRUGS (6)
  1. SEPTOCAINE AND EPINEPHRINE [Suspect]
     Active Substance: ARTICAINE HYDROCHLORIDE\EPINEPHRINE BITARTRATE
     Indication: LOCAL ANAESTHESIA
     Dosage: NERVE BLOCK TECHNIQUE USING 30G OR 27G MONOJECT NEEDLE IN MANDIBULAR LEFT POSTERIOR
     Route: 004
     Dates: start: 20161116, end: 20161116
  2. SEPTOCAINE AND EPINEPHRINE [Suspect]
     Active Substance: ARTICAINE HYDROCHLORIDE\EPINEPHRINE BITARTRATE
     Indication: LOCAL ANAESTHESIA
     Dosage: NERVE BLOCK TECHNIQUE USING 30G OR 27G MONOJECT NEEDLE IN MANDIBULAR LEFT POSTERIOR
     Route: 004
     Dates: start: 20161116, end: 20161116
  3. ZOLPIDEM TARTRATE. [Concomitant]
     Active Substance: ZOLPIDEM TARTRATE
  4. BENZOCAINE. [Concomitant]
     Active Substance: BENZOCAINE
     Route: 061
     Dates: start: 20161116, end: 20161116
  5. CLONAZEPAM. [Concomitant]
     Active Substance: CLONAZEPAM
  6. NEFAZODONE [Concomitant]
     Active Substance: NEFAZODONE

REACTIONS (1)
  - Drug ineffective [Recovered/Resolved]

NARRATIVE: CASE EVENT DATE: 20161116
